APPROVED DRUG PRODUCT: MODAFINIL
Active Ingredient: MODAFINIL
Strength: 200MG
Dosage Form/Route: TABLET;ORAL
Application: A077667 | Product #002 | TE Code: AB
Applicant: APOTEX INC
Approved: Feb 3, 2014 | RLD: No | RS: No | Type: RX